FAERS Safety Report 24842849 (Version 2)
Quarter: 2025Q1

REPORT INFORMATION
  Report Type: Report from Study
  Country: US (occurrence: US)
  Receive Date: 20250115
  Receipt Date: 20250130
  Transmission Date: 20250409
  Serious: Yes (Other)
  Sender: HRA PHARMA
  Company Number: US-ORG100014127-2024000237

PATIENT
  Age: 30 Year
  Sex: Female

DRUGS (39)
  1. LYSODREN [Suspect]
     Active Substance: MITOTANE
     Indication: Adrenocortical carcinoma
     Dosage: 500 MG; 2 TABLETS TWICE DAILY
     Route: 048
     Dates: start: 20240619
  2. LYSODREN [Suspect]
     Active Substance: MITOTANE
     Indication: Adrenocortical carcinoma
     Dosage: 500 MG; 3 TABLETS TWICE DAILY
     Route: 048
     Dates: start: 20240627
  3. LYSODREN [Suspect]
     Active Substance: MITOTANE
     Indication: Adrenocortical carcinoma
     Dosage: 500 MG; 4 TABLETS TWICE DAILY
     Route: 048
     Dates: start: 20240706
  4. LYSODREN [Suspect]
     Active Substance: MITOTANE
     Indication: Adrenocortical carcinoma
     Dosage: 500 MG; 5 TABLETS TWICE DAILY
     Route: 048
     Dates: end: 2024
  5. METOPIRONE [Suspect]
     Active Substance: METYRAPONE
     Indication: Adrenal gland cancer
     Dosage: 250 MG; 2 CAPSULES THREE TIMES DAILY
     Dates: start: 2024, end: 2024
  6. METOPIRONE [Suspect]
     Active Substance: METYRAPONE
     Indication: Adrenal gland cancer
     Dates: start: 2024
  7. cisplatin pow [Concomitant]
     Indication: Product used for unknown indication
  8. cisplatin inj 100mg [Concomitant]
     Indication: Product used for unknown indication
  9. DEXAMETHASONE [Concomitant]
     Active Substance: DEXAMETHASONE
     Indication: Product used for unknown indication
  10. diprivan inj 500/50ml [Concomitant]
     Indication: Product used for unknown indication
  11. doxorubicin inj 10/5ml [Concomitant]
     Indication: Product used for unknown indication
  12. ETHAMBUTOL HYDROCHLORIDE [Concomitant]
     Active Substance: ETHAMBUTOL HYDROCHLORIDE
     Indication: Product used for unknown indication
  13. ETOPOSIDE [Concomitant]
     Active Substance: ETOPOSIDE
     Indication: Product used for unknown indication
  14. etoposide pow [Concomitant]
     Indication: Product used for unknown indication
  15. fentanyl cit inj 100mcg [Concomitant]
     Indication: Product used for unknown indication
  16. fosaprepitant sol 150mg [Concomitant]
     Indication: Product used for unknown indication
  17. ISONIAZID [Concomitant]
     Active Substance: ISONIAZID
     Indication: Product used for unknown indication
  18. Klor-con M10 tab 10mEq er [Concomitant]
     Indication: Product used for unknown indication
  19. Klor-con M20 tab 20mEq er [Concomitant]
     Indication: Product used for unknown indication
  20. LUPRON DEPOT [Concomitant]
     Active Substance: LEUPROLIDE ACETATE
     Indication: Product used for unknown indication
  21. mag oxide tab 400mg [Concomitant]
     Indication: Product used for unknown indication
  22. midazolam inj 2mg/2ml [Concomitant]
     Indication: Product used for unknown indication
  23. ondansetron inj 40/20ml [Concomitant]
     Indication: Product used for unknown indication
  24. ONDANSETRON [Concomitant]
     Active Substance: ONDANSETRON
     Indication: Product used for unknown indication
  25. pot chloride inj 20mEq [Concomitant]
     Indication: Product used for unknown indication
  26. pot chloride inj 40meq [Concomitant]
     Indication: Product used for unknown indication
  27. prochlorper tab 10mg [Concomitant]
     Indication: Product used for unknown indication
  28. pyrazinamide tab 500mg [Concomitant]
     Indication: Product used for unknown indication
  29. pyridoxine tab 50mg [Concomitant]
     Indication: Product used for unknown indication
  30. rifampin cap 300mg [Concomitant]
     Indication: Product used for unknown indication
  31. AMLODIPINE [Concomitant]
     Active Substance: AMLODIPINE BESYLATE
     Indication: Product used for unknown indication
  32. eplerenone tablet 50mg [Concomitant]
     Indication: Product used for unknown indication
  33. IRBESARTAN [Concomitant]
     Active Substance: IRBESARTAN
     Indication: Product used for unknown indication
  34. levothyroxine tablet 25 mcg [Concomitant]
     Indication: Product used for unknown indication
  35. Januvia/sitagliptin tablet 100mg [Concomitant]
     Indication: Hypoglycaemia
  36. Vitamin D3 400 units [Concomitant]
     Indication: Product used for unknown indication
  37. PEMBROLIZUMAB [Concomitant]
     Active Substance: PEMBROLIZUMAB
     Indication: Product used for unknown indication
  38. MELATONIN TAB 10MG [Concomitant]
     Indication: Product used for unknown indication
  39. NOVOLOG [Concomitant]
     Active Substance: INSULIN ASPART
     Indication: Product used for unknown indication

REACTIONS (3)
  - Malignant neoplasm progression [Unknown]
  - Hypertransaminasaemia [Unknown]
  - Off label use [Unknown]
